FAERS Safety Report 8364609-5 (Version None)
Quarter: 2012Q2

REPORT INFORMATION
  Report Type: 
  Country: None (occurrence: None)
  Receive Date: 20120514
  Receipt Date: 20120510
  Transmission Date: 20120825
  Serious: Yes (Other)
  Sender: FDA-Public Use
  Company Number: ADR-2012-00615

PATIENT
  Sex: Female

DRUGS (2)
  1. BACLOFEN [Suspect]
     Indication: SPINAL CORD INJURY
  2. BACLOFEN [Suspect]
     Indication: MUSCLE SPASTICITY

REACTIONS (1)
  - IMPLANT SITE EROSION [None]
